FAERS Safety Report 8543506-6 (Version None)
Quarter: 2012Q3

REPORT INFORMATION
  Report Type: 
  Country: None (occurrence: None)
  Receive Date: 20120727
  Receipt Date: 20120724
  Transmission Date: 20120928
  Serious: Yes (Other)
  Sender: FDA-Public Use
  Company Number: PHHY2012BR064359

PATIENT
  Sex: Female

DRUGS (3)
  1. CLONAZEPAM [Concomitant]
     Indication: SLEEP DISORDER
     Dosage: 1 DF,  (AT NIGHT)
     Route: 048
  2. BROMAZEPAM [Concomitant]
     Indication: SLEEP DISORDER
  3. DIOVAN HCT [Suspect]
     Indication: HYPERTENSION
     Dosage: 1 DF, DAILY (VALS 160 MG AND HCTZ 12.5)
     Route: 048

REACTIONS (1)
  - DIABETES MELLITUS [None]
